FAERS Safety Report 17866033 (Version 1)
Quarter: 2020Q2

REPORT INFORMATION
  Report Type: Spontaneous
  Country: US (occurrence: US)
  Receive Date: 20200605
  Receipt Date: 20200605
  Transmission Date: 20200714
  Serious: No
  Sender: FDA-Public Use
  Company Number: None

PATIENT
  Age: 60 Year
  Sex: Female
  Weight: 64.8 kg

DRUGS (18)
  1. PEPCID [Concomitant]
     Active Substance: FAMOTIDINE
  2. VITAMIN B6 [Concomitant]
     Active Substance: PYRIDOXINE HYDROCHLORIDE
  3. BERBERINE [Concomitant]
     Active Substance: BERBERINE
  4. TYLENOL REGULAR STRENGTH [Concomitant]
     Active Substance: ACETAMINOPHEN
  5. VITAMIN C [Concomitant]
     Active Substance: ASCORBIC ACID
  6. VITAMIN D [Concomitant]
     Active Substance: VITAMIN D NOS
  7. ROSUVASTATIN CALCIUM 5 MG TAB [Suspect]
     Active Substance: ROSUVASTATIN CALCIUM
     Indication: HYPERLIPIDAEMIA
     Dosage: ?          QUANTITY:1 TABLET(S);?
     Route: 048
     Dates: start: 20200604, end: 20200604
  8. CLONAZEPAM. [Concomitant]
     Active Substance: CLONAZEPAM
  9. BYSTOLIC [Concomitant]
     Active Substance: NEBIVOLOL HYDROCHLORIDE
  10. TEMAZEPAM. [Concomitant]
     Active Substance: TEMAZEPAM
  11. MAGNESIUM MALATE. [Concomitant]
     Active Substance: MAGNESIUM MALATE
  12. PROBIOTICS [Concomitant]
     Active Substance: PROBIOTICS NOS
  13. VITAMIN B12 [Concomitant]
     Active Substance: CYANOCOBALAMIN
  14. SLIPPERY ELM [Concomitant]
     Active Substance: ELM
  15. BIOTIN [Concomitant]
     Active Substance: BIOTIN
  16. GLUCOSAMINE/MSM (SHELL FISH FREE) [Concomitant]
  17. ZINC. [Concomitant]
     Active Substance: ZINC
  18. LUTEIN [Concomitant]
     Active Substance: LUTEIN

REACTIONS (6)
  - Hypoaesthesia [None]
  - Muscle tightness [None]
  - Discomfort [None]
  - Middle insomnia [None]
  - Sleep disorder [None]
  - Pain [None]

NARRATIVE: CASE EVENT DATE: 20200605
